FAERS Safety Report 26065082 (Version 2)
Quarter: 2025Q4

REPORT INFORMATION
  Report Type: Spontaneous
  Country: GB (occurrence: GB)
  Receive Date: 20251119
  Receipt Date: 20251119
  Transmission Date: 20260117
  Serious: Yes (Other)
  Sender: ETHYPHARM
  Company Number: None

PATIENT
  Weight: 104 kg

DRUGS (1)
  1. BUPRENORPHINE [Suspect]
     Active Substance: BUPRENORPHINE
     Indication: Adverse drug reaction
     Dosage: 2MG X 3 TIMES PER DAY
     Dates: start: 20250208

REACTIONS (2)
  - Medication error [Unknown]
  - Abdominal pain [Not Recovered/Not Resolved]

NARRATIVE: CASE EVENT DATE: 20250905
